FAERS Safety Report 16055859 (Version 1)
Quarter: 2019Q1

REPORT INFORMATION
  Report Type: Spontaneous
  Country: US (occurrence: US)
  Receive Date: 20190208
  Receipt Date: 20190208
  Transmission Date: 20190418
  Serious: Yes (Hospitalization)
  Sender: FDA-Public Use
  Company Number: None

PATIENT
  Age: 34 Year
  Sex: Female

DRUGS (27)
  1. MONTELUKAST [Concomitant]
     Active Substance: MONTELUKAST SODIUM
  2. SPIRONOLACIOMA [Concomitant]
  3. DULOXCTINE [Concomitant]
  4. ATENOLOL. [Concomitant]
     Active Substance: ATENOLOL
  5. TYLENOL [Concomitant]
     Active Substance: ACETAMINOPHEN
  6. OMEGA 3 FISH OIL [Concomitant]
     Active Substance: FISH OIL\OMEGA-3 FATTY ACIDS
  7. PANTOPRAZOLA [Concomitant]
  8. OPSUMIT [Suspect]
     Active Substance: MACITENTAN
     Indication: PULMONARY ARTERIAL HYPERTENSION
     Route: 048
     Dates: start: 201805
  9. PREDNISONE. [Concomitant]
     Active Substance: PREDNISONE
  10. BUMETANIDE. [Concomitant]
     Active Substance: BUMETANIDE
  11. OXYCODONE [Concomitant]
     Active Substance: OXYCODONE
  12. GABAPENTIN. [Concomitant]
     Active Substance: GABAPENTIN
  13. CLIMARA [Concomitant]
     Active Substance: ESTRADIOL
  14. CETIRIZINE [Concomitant]
     Active Substance: CETIRIZINE HYDROCHLORIDE
  15. CALCIUM CARBONATE. [Concomitant]
     Active Substance: CALCIUM CARBONATE
  16. SILDENAFIL. [Concomitant]
     Active Substance: SILDENAFIL
  17. POTASSIUM CHLORIDE. [Concomitant]
     Active Substance: POTASSIUM CHLORIDE
  18. EDROXYPROGESTERONE [Concomitant]
  19. VIATMIN D3 [Concomitant]
  20. MAGNESIUM OXIDE. [Concomitant]
     Active Substance: MAGNESIUM OXIDE
  21. DIAZEPAM. [Concomitant]
     Active Substance: DIAZEPAM
  22. ESGIE [Concomitant]
  23. LEVOTHYROXINC [Concomitant]
  24. NARDAN NASAL SPRAY [Concomitant]
  25. MVI [Concomitant]
     Active Substance: VITAMINS
  26. OLANZAPINE. [Concomitant]
     Active Substance: OLANZAPINE
  27. MIDODRINE [Concomitant]
     Active Substance: MIDODRINE

REACTIONS (4)
  - Vomiting [None]
  - Nausea [None]
  - Dehydration [None]
  - Hypokalaemia [None]

NARRATIVE: CASE EVENT DATE: 20190205
